FAERS Safety Report 23180640 (Version 3)
Quarter: 2024Q1

REPORT INFORMATION
  Report Type: Report from Study
  Country: CA (occurrence: CA)
  Receive Date: 20231114
  Receipt Date: 20240320
  Transmission Date: 20240410
  Serious: Yes (Other)
  Sender: FDA-Public Use
  Company Number: CA-ABBVIE-5491906

PATIENT
  Sex: Female

DRUGS (2)
  1. RINVOQ [Suspect]
     Active Substance: UPADACITINIB
     Indication: Ankylosing spondylitis
     Dosage: STRENGTH-15MG, LAST ADMIN DATE-2023
     Route: 048
     Dates: start: 20231020
  2. RINVOQ [Suspect]
     Active Substance: UPADACITINIB
     Indication: Ankylosing spondylitis
     Dosage: FIRST ADMIN DATE: 2023?FORM STRENGTH 15: MILLIGRAM
     Route: 048

REACTIONS (3)
  - Uterine haemorrhage [Not Recovered/Not Resolved]
  - Nasopharyngitis [Unknown]
  - Paranasal sinus hypersecretion [Unknown]

NARRATIVE: CASE EVENT DATE: 20230101
